FAERS Safety Report 8198908-7 (Version None)
Quarter: 2012Q1

REPORT INFORMATION
  Report Type: 
  Country: None (occurrence: None)
  Receive Date: 20120309
  Receipt Date: 20120224
  Transmission Date: 20120608
  Serious: No
  Sender: FDA-Public Use
  Company Number: US-AMGEN-USASP2011026026

PATIENT
  Age: 79 Year
  Sex: Female
  Weight: 64.399 kg

DRUGS (3)
  1. PREDNISONE TAB [Concomitant]
  2. METHOTREXATE [Concomitant]
  3. PROLIA [Suspect]
     Indication: OSTEOPOROSIS POSTMENOPAUSAL
     Dosage: 60 MG, Q6MO
     Route: 058
     Dates: start: 20110309, end: 20110310

REACTIONS (2)
  - OEDEMA PERIPHERAL [None]
  - INJECTION SITE RASH [None]
